FAERS Safety Report 4685906-0 (Version None)
Quarter: 2005Q2

REPORT INFORMATION
  Report Type: 
  Country: None (occurrence: None)
  Receive Date: 20050607
  Receipt Date: 20050607
  Transmission Date: 20051028
  Serious: No
  Sender: FDA-Public Use
  Company Number: None

PATIENT

DRUGS (1)
  1. VIAGRA TABLETS 100MG PFIZER [Suspect]
     Dosage: 100 MILLIGRAMS BOTTLE

REACTIONS (2)
  - EYE DISORDER [None]
  - VISION BLURRED [None]
